FAERS Safety Report 9373746 (Version 1)
Quarter: 2013Q2

REPORT INFORMATION
  Report Type: Spontaneous
  Country: CO (occurrence: CO)
  Receive Date: 20130628
  Receipt Date: 20130628
  Transmission Date: 20140414
  Serious: Yes (Other)
  Sender: FDA-Public Use
  Company Number: CO-009507513-1306COL010952

PATIENT
  Age: 48 Year
  Sex: Male

DRUGS (3)
  1. VICTRELIS [Suspect]
     Indication: HEPATITIS C
     Dosage: 2400MG DAILY
     Route: 048
     Dates: start: 20130615, end: 20130619
  2. REBETOL [Suspect]
     Indication: HEPATITIS C
     Dosage: 1000 MG DAILY
     Route: 048
     Dates: start: 20130518, end: 20130619
  3. PEGASYS [Suspect]
     Indication: HEPATITIS C
     Dosage: UNK UNK, QW
     Route: 058
     Dates: start: 20130518, end: 20130619

REACTIONS (6)
  - Neutrophil count abnormal [Unknown]
  - Diarrhoea [Unknown]
  - Abdominal pain [Unknown]
  - Malaise [Unknown]
  - Blood bilirubin increased [Unknown]
  - Gastroenteritis [Unknown]
